FAERS Safety Report 4800161-6 (Version None)
Quarter: 2005Q4

REPORT INFORMATION
  Report Type: 
  Country: None (occurrence: None)
  Receive Date: 20051017
  Receipt Date: 20051006
  Transmission Date: 20060501
  Serious: Yes (Death)
  Sender: FDA-Public Use
  Company Number: JP-JNJFOC-20051001375

PATIENT
  Age: 74 Year
  Sex: Male

DRUGS (11)
  1. TAVANIC [Suspect]
     Indication: PNEUMONIA
     Route: 042
     Dates: start: 20050425, end: 20050426
  2. ROCEPHIN [Concomitant]
     Indication: PNEUMONIA
     Route: 065
     Dates: start: 20050426, end: 20050427
  3. PRIMAXIN [Concomitant]
     Route: 065
     Dates: start: 20050427, end: 20050429
  4. PRIMAXIN [Concomitant]
     Indication: PNEUMONIA
     Route: 065
     Dates: start: 20050427, end: 20050429
  5. ISOPTIN [Concomitant]
     Indication: TACHYCARDIA
     Route: 042
     Dates: start: 20050424
  6. PANTOPRAZOLE [Concomitant]
     Indication: GASTROINTESTINAL DISORDER THERAPY
     Route: 042
     Dates: start: 20050424
  7. DIGOXIN [Concomitant]
     Indication: TACHYCARDIA
     Route: 042
     Dates: start: 20020101
  8. DIGOXIN [Concomitant]
     Route: 042
     Dates: start: 20020101
  9. ENOXAPARIN SODIUM [Concomitant]
     Indication: ANTICOAGULANT THERAPY
     Route: 042
     Dates: start: 20050424
  10. METAMIZOLE [Concomitant]
     Indication: PAIN
     Route: 042
     Dates: start: 20050424
  11. BISOPROLOL [Concomitant]
     Route: 048
     Dates: start: 20020101

REACTIONS (2)
  - CARDIOPULMONARY FAILURE [None]
  - SEPSIS [None]
